FAERS Safety Report 10390774 (Version 1)
Quarter: 2014Q3

REPORT INFORMATION
  Report Type: Spontaneous
  Country: US (occurrence: None)
  Receive Date: 20140815
  Receipt Date: 20140815
  Transmission Date: 20150326
  Serious: Yes (Death)
  Sender: FDA-Public Use
  Company Number: None

PATIENT
  Age: 62 Year
  Sex: Male
  Weight: 89.3 kg

DRUGS (1)
  1. CYTARABINE. [Suspect]
     Active Substance: CYTARABINE
     Dates: end: 20140725

REACTIONS (5)
  - Hypotension [None]
  - Pancytopenia [None]
  - Renal failure acute [None]
  - Staphylococcal bacteraemia [None]
  - Myocardial ischaemia [None]

NARRATIVE: CASE EVENT DATE: 20140807
